FAERS Safety Report 7988822-1 (Version None)
Quarter: 2011Q4

REPORT INFORMATION
  Report Type: 
  Country: None (occurrence: None)
  Receive Date: 20111215
  Receipt Date: 20111215
  Transmission Date: 20120403
  Serious: Yes (Other)
  Sender: FDA-Public Use
  Company Number: None

PATIENT
  Age: 75 Year
  Sex: Male

DRUGS (4)
  1. HYDROCODONE BITARTRATE AND ACETAMINOPHEN [Concomitant]
  2. REVLIMID [Suspect]
     Indication: MULTIPLE MYELOMA
     Dosage: 25 MG DAILY X21D/28D ORALLY
     Route: 048
     Dates: start: 20100201
  3. IBUPROFEN [Concomitant]
  4. WARFARIN SODIUM [Concomitant]

REACTIONS (1)
  - LEUKOPENIA [None]
